FAERS Safety Report 12613698 (Version 2)
Quarter: 2016Q3

REPORT INFORMATION
  Report Type: Spontaneous
  Country: US (occurrence: US)
  Receive Date: 20160802
  Receipt Date: 20160816
  Transmission Date: 20161109
  Serious: Yes (Death)
  Sender: FDA-Public Use
  Company Number: US-ADAPT PHARMA INC-2016ADP00017

PATIENT
  Age: 33 Year
  Sex: Male

DRUGS (5)
  1. HEROIN [Suspect]
     Active Substance: DIACETYLMORPHINE
     Dosage: UNK, UNK
     Route: 065
     Dates: end: 20160714
  2. NARCAN [Suspect]
     Active Substance: NALOXONE HYDROCHLORIDE
     Indication: OVERDOSE
     Dosage: 4 MG, ONCE
     Route: 045
     Dates: start: 20160714, end: 20160714
  3. UNSPECIFIED PILLS [Concomitant]
     Active Substance: UNSPECIFIED INGREDIENT
  4. XANAX [Suspect]
     Active Substance: ALPRAZOLAM
     Dosage: UNK, UNK
     Route: 065
     Dates: end: 20160714
  5. ETHANOL [Suspect]
     Active Substance: ALCOHOL
     Dosage: UNK, UNK
     Route: 065
     Dates: end: 20160714

REACTIONS (1)
  - Drug ineffective [Fatal]

NARRATIVE: CASE EVENT DATE: 20160714
